FAERS Safety Report 25111575 (Version 2)
Quarter: 2025Q3

REPORT INFORMATION
  Report Type: Report from Study
  Country: PK (occurrence: PK)
  Receive Date: 20250324
  Receipt Date: 20250708
  Transmission Date: 20251020
  Serious: Yes (Other)
  Sender: MYLAN
  Company Number: PK-MYLANLABS-2025M1023031

PATIENT
  Age: 54 Year
  Sex: Female
  Weight: 46 kg

DRUGS (10)
  1. PRETOMANID [Suspect]
     Active Substance: PRETOMANID
     Indication: Tuberculosis
     Dosage: 200 MILLIGRAM, QD
     Dates: start: 20241216, end: 20250315
  2. PRETOMANID [Suspect]
     Active Substance: PRETOMANID
  3. LINEZOLID [Suspect]
     Active Substance: LINEZOLID
     Indication: Tuberculosis
     Dosage: 600 MILLIGRAM, QD
     Dates: start: 20241216, end: 20250315
  4. LINEZOLID [Suspect]
     Active Substance: LINEZOLID
  5. BEDAQUILINE [Suspect]
     Active Substance: BEDAQUILINE
     Indication: Tuberculosis
     Dosage: 200 MILLIGRAM, 3XW
     Dates: start: 20241216, end: 20250315
  6. BEDAQUILINE [Suspect]
     Active Substance: BEDAQUILINE
  7. MOXIFLOXACIN [Suspect]
     Active Substance: MOXIFLOXACIN
     Indication: Tuberculosis
     Dosage: 400 MILLIGRAM, QD
     Dates: start: 20241216, end: 20250315
  8. MOXIFLOXACIN [Suspect]
     Active Substance: MOXIFLOXACIN
  9. PYRIDOXINE [Concomitant]
     Active Substance: PYRIDOXINE
     Indication: Neuropathy peripheral
     Dosage: 50 MILLIGRAM, QD
     Dates: start: 20241216, end: 20250315
  10. METFORMIN [Concomitant]
     Active Substance: METFORMIN HYDROCHLORIDE
     Indication: Diabetes mellitus
     Dosage: 500 MILLIGRAM, BID
     Dates: start: 20241230, end: 20250315

REACTIONS (6)
  - Aspartate aminotransferase increased [Unknown]
  - Alanine aminotransferase increased [Recovering/Resolving]
  - Glycosylated haemoglobin increased [Unknown]
  - Abdominal pain upper [Unknown]
  - Nausea [Unknown]
  - Dyspepsia [Unknown]

NARRATIVE: CASE EVENT DATE: 20241216
